FAERS Safety Report 18287330 (Version 5)
Quarter: 2021Q3

REPORT INFORMATION
  Report Type: Spontaneous
  Country: US (occurrence: US)
  Receive Date: 20200921
  Receipt Date: 20210728
  Transmission Date: 20211014
  Serious: Yes (Other)
  Sender: FDA-Public Use
  Company Number: US-GLAXOSMITHKLINE-US2020AMR185790

PATIENT
  Sex: Female

DRUGS (7)
  1. ZEJULA [Suspect]
     Active Substance: NIRAPARIB
     Dosage: 200 MG, QD
  2. ZEJULA [Suspect]
     Active Substance: NIRAPARIB
     Indication: OVARIAN CANCER
     Dosage: 200 MG, QD
     Route: 048
     Dates: start: 20200829
  3. ZEJULA [Suspect]
     Active Substance: NIRAPARIB
     Dosage: 200 MG, QD
     Route: 048
  4. ZEJULA [Suspect]
     Active Substance: NIRAPARIB
     Dosage: 200 MG, QD
  5. ZEJULA [Suspect]
     Active Substance: NIRAPARIB
     Dosage: 200 MG, QD
     Dates: start: 20200929
  6. ZEJULA [Suspect]
     Active Substance: NIRAPARIB
     Dosage: 200 MG, QD
     Dates: start: 202009
  7. ZEJULA [Suspect]
     Active Substance: NIRAPARIB
     Dosage: 200 MG, QD

REACTIONS (9)
  - Blood potassium decreased [Unknown]
  - Fatigue [Not Recovered/Not Resolved]
  - Suture insertion [Unknown]
  - Neuropathy peripheral [Unknown]
  - Skin laceration [Unknown]
  - Fall [Unknown]
  - Skin haemorrhage [Unknown]
  - Constipation [Recovering/Resolving]
  - Computerised tomogram abnormal [Unknown]
